FAERS Safety Report 6827979-2 (Version None)
Quarter: 2010Q3

REPORT INFORMATION
  Report Type: 
  Country: None (occurrence: None)
  Receive Date: 20100709
  Receipt Date: 20100629
  Transmission Date: 20110219
  Serious: Yes (Hospitalization)
  Sender: FDA-Public Use
  Company Number: A0869102A

PATIENT
  Age: 80 Year
  Sex: Female

DRUGS (1)
  1. RYTHMOL SR [Suspect]
     Indication: PRODUCT USED FOR UNKNOWN INDICATION
     Dosage: 325MG UNKNOWN
     Route: 065
     Dates: start: 20030101

REACTIONS (2)
  - FALL [None]
  - SUTURE INSERTION [None]
